FAERS Safety Report 6240447-4 (Version None)
Quarter: 2009Q2

REPORT INFORMATION
  Report Type: 
  Country: None (occurrence: None)
  Receive Date: 20090619
  Receipt Date: 20090605
  Transmission Date: 20091009
  Serious: Yes (Death)
  Sender: FDA-Public Use
  Company Number: KADN20090012

PATIENT
  Age: 16 Year
  Sex: Female

DRUGS (3)
  1. MORPHINE [Suspect]
     Dosage: INGESTION
     Dates: end: 20070101
  2. ALPRAZOLAM [Suspect]
     Dosage: INGESTION
     Dates: end: 20070101
  3. ALCOHOL [Suspect]
     Dosage: INGESTION
     Dates: end: 20070101

REACTIONS (8)
  - ACCIDENTAL DEATH [None]
  - CARDIO-RESPIRATORY ARREST [None]
  - DRUG TOXICITY [None]
  - INTENTIONAL DRUG MISUSE [None]
  - NAUSEA [None]
  - SELF-MEDICATION [None]
  - TOXICOLOGIC TEST ABNORMAL [None]
  - VOMITING [None]
